FAERS Safety Report 9310834 (Version 1)
Quarter: 2013Q2

REPORT INFORMATION
  Report Type: Spontaneous
  Country: US (occurrence: None)
  Receive Date: 20130523
  Receipt Date: 20130523
  Transmission Date: 20140414
  Serious: Yes (Other)
  Sender: FDA-Public Use
  Company Number: None

PATIENT
  Age: 50 Year
  Sex: Female
  Weight: 59.88 kg

DRUGS (1)
  1. GENERIC PERCOCET 10/325 [Suspect]

REACTIONS (3)
  - Headache [None]
  - Vomiting [None]
  - Product substitution issue [None]
